FAERS Safety Report 25250414 (Version 2)
Quarter: 2025Q3

REPORT INFORMATION
  Report Type: Report from Study
  Country: US (occurrence: US)
  Receive Date: 20250429
  Receipt Date: 20250905
  Transmission Date: 20251021
  Serious: Yes (Disabling)
  Sender: GILEAD
  Company Number: US-GILEAD-2025-0711907

PATIENT
  Sex: Female

DRUGS (1)
  1. SOFOSBUVIR\VELPATASVIR [Suspect]
     Active Substance: SOFOSBUVIR\VELPATASVIR
     Indication: Chronic hepatitis C
     Dosage: 400-100 TAKING ONCE DAILY
     Route: 048
     Dates: start: 20250411

REACTIONS (3)
  - Pain [Recovering/Resolving]
  - Oral pruritus [Unknown]
  - Arthralgia [Not Recovered/Not Resolved]
